FAERS Safety Report 9660586 (Version 2)
Quarter: 2013Q4

REPORT INFORMATION
  Report Type: Spontaneous
  Country: TR (occurrence: TR)
  Receive Date: 20131031
  Receipt Date: 20131031
  Transmission Date: 20140711
  Serious: Yes (Other)
  Sender: FDA-Public Use
  Company Number: TR-AMGEN-TURSP2012043316

PATIENT
  Age: 36 Year
  Sex: Male

DRUGS (3)
  1. ENBREL [Suspect]
     Indication: ANKYLOSING SPONDYLITIS
     Dosage: 50 MG, ONCE IN 12 DAYS
     Route: 058
     Dates: start: 20110414
  2. ENBREL [Suspect]
     Dosage: 50 MG, ONCE IN 14 DAYS
     Route: 058
     Dates: start: 20120708, end: 201307
  3. ENBREL [Suspect]
     Dosage: 50 MG, ONCE IN 14 DAYS
     Route: 058
     Dates: start: 20131001, end: 201310

REACTIONS (11)
  - Nephrolithiasis [Not Recovered/Not Resolved]
  - Influenza [Unknown]
  - Asthenia [Not Recovered/Not Resolved]
  - Pyrexia [Recovered/Resolved]
  - Neck pain [Unknown]
  - Muscle spasms [Unknown]
  - Drug ineffective [Not Recovered/Not Resolved]
  - Upper respiratory tract infection [Recovered/Resolved]
  - Injection site pain [Not Recovered/Not Resolved]
  - Furuncle [Not Recovered/Not Resolved]
  - Injection site swelling [Not Recovered/Not Resolved]
